FAERS Safety Report 6569551-8 (Version None)
Quarter: 2010Q1

REPORT INFORMATION
  Report Type: 
  Country: None (occurrence: None)
  Receive Date: 20100204
  Receipt Date: 20100125
  Transmission Date: 20100710
  Serious: Yes (Other)
  Sender: FDA-Public Use
  Company Number: US-JNJFOC-20100110334

PATIENT
  Age: 34 Year
  Sex: Female
  Weight: 76.2 kg

DRUGS (2)
  1. TYLENOL (CAPLET) [Suspect]
     Route: 048
  2. TYLENOL (CAPLET) [Suspect]
     Indication: HEADACHE
     Dosage: 325 MG TO 650 MG
     Route: 048

REACTIONS (6)
  - DRUG EXPOSURE DURING PREGNANCY [None]
  - DRUG INEFFECTIVE [None]
  - HELLP SYNDROME [None]
  - LIVER FUNCTION TEST ABNORMAL [None]
  - PREMATURE LABOUR [None]
  - PRODUCT QUALITY ISSUE [None]
